FAERS Safety Report 6023677-6 (Version None)
Quarter: 2008Q4

REPORT INFORMATION
  Report Type: 
  Country: None (occurrence: None)
  Receive Date: 20081226
  Receipt Date: 20081226
  Transmission Date: 20090506
  Serious: Yes (Life-Threatening, Disabling)
  Sender: FDA-Public Use
  Company Number: None

PATIENT
  Age: 62 Year
  Sex: Female
  Weight: 71.2147 kg

DRUGS (1)
  1. CRESTOR [Suspect]
     Indication: BLOOD TRIGLYCERIDES INCREASED
     Dosage: 1 5MG. TABLET 1X NIGHTLY PO
     Route: 048
     Dates: start: 20081206, end: 20081215

REACTIONS (5)
  - ANURIA [None]
  - HYPOAESTHESIA [None]
  - PARAESTHESIA [None]
  - RENAL INJURY [None]
  - VAGINAL INFECTION [None]
